FAERS Safety Report 26062168 (Version 1)
Quarter: 2025Q4

REPORT INFORMATION
  Report Type: Report from Study
  Country: US (occurrence: US)
  Receive Date: 20251119
  Receipt Date: 20251119
  Transmission Date: 20260118
  Serious: Yes (Other)
  Sender: ACADIA PHARMACEUTICALS
  Company Number: US-ACADIA PHARMACEUTICALS INC.-ACA-2025-PIM-012285

PATIENT
  Age: 79 Year
  Sex: Male

DRUGS (15)
  1. NUPLAZID [Suspect]
     Active Substance: PIMAVANSERIN TARTRATE
     Indication: Parkinson^s disease psychosis
     Dosage: 34 MILLIGRAM, QD
     Route: 048
     Dates: start: 20250618
  2. VILAZODONE [Concomitant]
     Active Substance: VILAZODONE
  3. CLONAZEPAM [Concomitant]
     Active Substance: CLONAZEPAM
  4. LORAZEPAM [Concomitant]
     Active Substance: LORAZEPAM
  5. BELSOMRA [Concomitant]
     Active Substance: SUVOREXANT
  6. MEMANTINE [Concomitant]
     Active Substance: MEMANTINE
  7. TAMSULOSIN [Concomitant]
     Active Substance: TAMSULOSIN
  8. PRAVASTATIN [Concomitant]
     Active Substance: PRAVASTATIN
  9. PYRIDOSTIGMINE [Concomitant]
     Active Substance: PYRIDOSTIGMINE
  10. CARBIDOPA AND LEVODOPA [Concomitant]
     Active Substance: CARBIDOPA\LEVODOPA
  11. PREDNISONE [Concomitant]
     Active Substance: PREDNISONE
  12. LEVOTHYROXINE [Concomitant]
     Active Substance: LEVOTHYROXINE
  13. ASPIRIN [Concomitant]
     Active Substance: ASPIRIN
  14. INGREZZA [Concomitant]
     Active Substance: VALBENAZINE DITOSYLATE
  15. METOPROLOL [Concomitant]
     Active Substance: METOPROLOL

REACTIONS (3)
  - Hallucination [Unknown]
  - Panic attack [Unknown]
  - Abnormal behaviour [Unknown]

NARRATIVE: CASE EVENT DATE: 20251030
